FAERS Safety Report 19221731 (Version 2)
Quarter: 2021Q2

REPORT INFORMATION
  Report Type: Report from Study
  Country: KR (occurrence: KR)
  Receive Date: 20210505
  Receipt Date: 20210621
  Transmission Date: 20210717
  Serious: Yes (Other)
  Sender: FDA-Public Use
  Company Number: KR-TAKEDA-2021TUS026974

PATIENT
  Sex: Female
  Weight: 45 kg

DRUGS (9)
  1. CEFTRIAXONE. [Concomitant]
     Active Substance: CEFTRIAXONE
     Dosage: 2 GRAM, QD
     Route: 042
     Dates: start: 20210415, end: 20210415
  2. AZABIO [Concomitant]
     Dosage: 75 MILLIGRAM, QD
     Route: 048
     Dates: start: 20200904
  3. BOLGRE [Concomitant]
     Indication: IRON DEFICIENCY ANAEMIA
     Dosage: 10 MILLILITER, QD
     Route: 048
     Dates: start: 20201010
  4. RABIET [Concomitant]
     Indication: CELLULITIS
     Dosage: 100 MILLIGRAM, QD
     Route: 048
     Dates: start: 20210415, end: 20210421
  5. DURICEF [Concomitant]
     Active Substance: CEFADROXIL
     Indication: CELLULITIS
     Dosage: 500 MILLIGRAM, BID
     Route: 048
     Dates: start: 20210415, end: 20210421
  6. ULTRACET [Concomitant]
     Active Substance: ACETAMINOPHEN\TRAMADOL HYDROCHLORIDE
     Indication: CELLULITIS
     Dosage: UNK UNK, BID
     Route: 048
     Dates: start: 20210415, end: 20210421
  7. VEDOLIZUMAB [Suspect]
     Active Substance: VEDOLIZUMAB
     Indication: COLITIS ULCERATIVE
     Dosage: 300 MILLIGRAM
     Route: 065
     Dates: start: 20210106
  8. PENTASA [Concomitant]
     Active Substance: MESALAMINE
     Dosage: 4 GRAM, QD
     Route: 048
     Dates: start: 20200717
  9. LACIDOFIL [Concomitant]
     Active Substance: PROBIOTICS NOS
     Dosage: 20 MILLIGRAM, BID
     Route: 048
     Dates: start: 20201114

REACTIONS (1)
  - Cellulitis [Recovered/Resolved]

NARRATIVE: CASE EVENT DATE: 20210413
